FAERS Safety Report 10470595 (Version 1)
Quarter: 2014Q3

REPORT INFORMATION
  Report Type: Report from Study
  Country: CA (occurrence: CA)
  Receive Date: 20140923
  Receipt Date: 20140923
  Transmission Date: 20150326
  Serious: Yes (Other)
  Sender: FDA-Public Use
  Company Number: CHPA2014CA012652

PATIENT

DRUGS (1)
  1. NEOCITRAN UNKNOWN [Suspect]
     Active Substance: ACETAMINOPHEN\CHLORPHENIRAMINE\DEXTROMETHORPHAN HYDROBROMIDE\PSEUDOEPHEDRINE

REACTIONS (1)
  - Prostatomegaly [Unknown]
